FAERS Safety Report 5338452-5 (Version None)
Quarter: 2007Q2

REPORT INFORMATION
  Report Type: 
  Country: None (occurrence: None)
  Receive Date: 20070322
  Receipt Date: 20060705
  Transmission Date: 20071010
  Serious: Yes (Other)
  Sender: FDA-Public Use
  Company Number: 200612192BCC

PATIENT
  Sex: Male
  Weight: 88.4514 kg

DRUGS (4)
  1. ALEVE (CAPLET) [Suspect]
     Indication: RHEUMATOID ARTHRITIS
     Dosage: 220 MG,ONCE,ORAL
     Route: 048
     Dates: start: 20060522
  2. AVAPRO [Concomitant]
  3. IMDUR [Concomitant]
  4. PREDNISONE TAB [Concomitant]

REACTIONS (1)
  - HYPERTENSION [None]
